FAERS Safety Report 5809011-2 (Version None)
Quarter: 2008Q3

REPORT INFORMATION
  Report Type: 
  Country: None (occurrence: None)
  Receive Date: 20080710
  Receipt Date: 20080710
  Transmission Date: 20090109
  Serious: Yes (Hospitalization, Disabling)
  Sender: FDA-Public Use
  Company Number: None

PATIENT
  Age: 39 Year
  Sex: Male
  Weight: 68.0396 kg

DRUGS (2)
  1. CIPRO [Suspect]
     Indication: CYSTITIS
     Dosage: EVERY 3-4 MONTHS PO
     Route: 048
     Dates: start: 19950101, end: 20010101
  2. LEVAQUIN [Suspect]
     Indication: CYSTITIS
     Dosage: 1-2 TIMES PER YEAR PO
     Route: 048
     Dates: start: 20010101, end: 20070101

REACTIONS (2)
  - MUSCLE SPASMS [None]
  - TENDON DISORDER [None]
